FAERS Safety Report 7535536-8 (Version None)
Quarter: 2011Q2

REPORT INFORMATION
  Report Type: 
  Country: None (occurrence: None)
  Receive Date: 20110609
  Receipt Date: 20110128
  Transmission Date: 20111010
  Serious: Yes (Other)
  Sender: FDA-Public Use
  Company Number: US-BAYER-201034491NA

PATIENT
  Age: 25 Year
  Sex: Female
  Weight: 72.562 kg

DRUGS (15)
  1. TOPAMAX [Concomitant]
     Dosage: 50 MG, BID
  2. YASMIN [Suspect]
     Indication: CONTRACEPTION
     Route: 048
     Dates: start: 20021101, end: 20090901
  3. YASMIN [Suspect]
     Indication: PAIN
  4. OCEAN NASAL [Concomitant]
  5. YASMIN [Suspect]
     Indication: MENSTRUAL CYCLE MANAGEMENT
     Dosage: UNK
     Dates: start: 20021201, end: 20090910
  6. COLECALCIFEROL [Concomitant]
  7. NEILMED SINUS RINSE [Concomitant]
  8. ONE-TABLET-DAILY [Concomitant]
  9. PROAIR HFA 90 MCG/ACTUATION INHL HFAA [Concomitant]
  10. ZYRTEC [Concomitant]
     Dosage: UNK UNK, QD
  11. FLUTICASONE PROPIONATE [Concomitant]
  12. NAPROXEN SODIUM [Concomitant]
  13. NASL AERO SPRAY [Concomitant]
  14. LORATADINE [Concomitant]
  15. OYSTER SHELL CALCIUM [Concomitant]

REACTIONS (3)
  - UNEVALUABLE EVENT [None]
  - DEEP VEIN THROMBOSIS [None]
  - ABASIA [None]
